FAERS Safety Report 11786765 (Version 3)
Quarter: 2016Q2

REPORT INFORMATION
  Report Type: Report from Study
  Country: JP (occurrence: JP)
  Receive Date: 20151130
  Receipt Date: 20160624
  Transmission Date: 20160815
  Serious: Yes (Other)
  Sender: FDA-Public Use
  Company Number: JP-JNJFOC-20150927360

PATIENT
  Age: 68 Year
  Sex: Male

DRUGS (17)
  1. XEPLION [Suspect]
     Active Substance: PALIPERIDONE PALMITATE
     Indication: SCHIZOPHRENIA
     Dosage: ADMINISTERED IN LEFT GLUTEAL MUSCLE
     Route: 030
     Dates: start: 20150710, end: 20150710
  2. XEPLION [Suspect]
     Active Substance: PALIPERIDONE PALMITATE
     Indication: SCHIZOPHRENIA
     Dosage: ADMINISTERED IN RIGHT GLUTEAL MUSCLE
     Route: 030
     Dates: start: 20150403, end: 20150403
  3. NELBON [Concomitant]
     Active Substance: NITRAZEPAM
     Indication: INSOMNIA
     Route: 048
     Dates: start: 20150609
  4. XEPLION [Suspect]
     Active Substance: PALIPERIDONE PALMITATE
     Indication: SCHIZOPHRENIA
     Dosage: ADMINISTERED IN RIGHT GLUTEAL MUSCLE
     Route: 030
     Dates: start: 20151211, end: 20151211
  5. XEPLION [Suspect]
     Active Substance: PALIPERIDONE PALMITATE
     Indication: SCHIZOPHRENIA
     Dosage: ADMINISTERED IN LEFT GLUTEAL MUSCLE
     Route: 030
     Dates: start: 20160115, end: 20160115
  6. XEPLION [Suspect]
     Active Substance: PALIPERIDONE PALMITATE
     Indication: SCHIZOPHRENIA
     Dosage: ADMINISTERED IN RIGHT GLUTEAL MUSCLE
     Route: 030
     Dates: start: 20150609, end: 20150609
  7. XEPLION [Suspect]
     Active Substance: PALIPERIDONE PALMITATE
     Indication: SCHIZOPHRENIA
     Dosage: ADMINISTERED IN LEFT GLUTEAL MUSCLE
     Route: 030
     Dates: start: 20150427, end: 20150427
  8. XEPLION [Suspect]
     Active Substance: PALIPERIDONE PALMITATE
     Indication: SCHIZOPHRENIA
     Dosage: ADMINISTERED IN LEFT GLUTEAL MUSCLE
     Route: 030
     Dates: start: 20150904, end: 20150904
  9. METGLUCO [Concomitant]
     Active Substance: METFORMIN HYDROCHLORIDE
     Indication: DIABETES MELLITUS
     Route: 048
  10. JANUVIA [Concomitant]
     Active Substance: SITAGLIPTIN PHOSPHATE
     Indication: DIABETES MELLITUS
     Route: 048
  11. XEPLION [Suspect]
     Active Substance: PALIPERIDONE PALMITATE
     Indication: SCHIZOPHRENIA
     Dosage: ADMINISTERED IN RIGHT GLUTEAL MUSCLE
     Route: 030
     Dates: start: 20160219, end: 20160219
  12. XEPLION [Suspect]
     Active Substance: PALIPERIDONE PALMITATE
     Indication: SCHIZOPHRENIA
     Dosage: ADMINISTERED IN LEFT GLUTEAL MUSCLE
     Route: 030
     Dates: start: 20160325, end: 20160325
  13. VOGLIBOSE [Concomitant]
     Active Substance: VOGLIBOSE
     Indication: DIABETES MELLITUS
     Route: 048
  14. XEPLION [Suspect]
     Active Substance: PALIPERIDONE PALMITATE
     Indication: SCHIZOPHRENIA
     Dosage: ADMINISTERED IN RIGHT GLUTEAL MUSCLE
     Route: 030
     Dates: start: 20150807, end: 20150807
  15. XEPLION [Suspect]
     Active Substance: PALIPERIDONE PALMITATE
     Indication: SCHIZOPHRENIA
     Dosage: ADMINISTERED IN RIGHT GLUTEAL MUSCLE
     Route: 030
     Dates: start: 20151002, end: 20151002
  16. XEPLION [Suspect]
     Active Substance: PALIPERIDONE PALMITATE
     Indication: SCHIZOPHRENIA
     Dosage: ADMINISTERED IN LEFT GLUTEAL MUSCLE
     Route: 030
     Dates: start: 20151106, end: 20151106
  17. XEPLION [Suspect]
     Active Substance: PALIPERIDONE PALMITATE
     Indication: SCHIZOPHRENIA
     Dosage: ADMINISTERED IN RIGHT GLUTEAL MUSCLE
     Route: 030
     Dates: start: 20160422

REACTIONS (2)
  - Insomnia [Not Recovered/Not Resolved]
  - Diabetes mellitus [Not Recovered/Not Resolved]

NARRATIVE: CASE EVENT DATE: 20150427
